FAERS Safety Report 25101152 (Version 2)
Quarter: 2025Q3

REPORT INFORMATION
  Report Type: Report from Study
  Country: US (occurrence: US)
  Receive Date: 20250320
  Receipt Date: 20250711
  Transmission Date: 20251020
  Serious: Yes (Hospitalization, Other)
  Sender: ABBVIE
  Company Number: US-ABBVIE-6179605

PATIENT
  Age: 67 Year
  Sex: Female

DRUGS (1)
  1. RINVOQ [Suspect]
     Active Substance: UPADACITINIB
     Indication: Rheumatoid arthritis
     Dosage: FORM STRENGTH: 15 MG
     Route: 048
     Dates: start: 20241125, end: 202502

REACTIONS (6)
  - Hip arthroplasty [Unknown]
  - Drug ineffective [Unknown]
  - Mobility decreased [Not Recovered/Not Resolved]
  - Musculoskeletal stiffness [Unknown]
  - Steroid therapy [Unknown]
  - Polyarthritis [Unknown]

NARRATIVE: CASE EVENT DATE: 20241101
